FAERS Safety Report 8507186-8 (Version None)
Quarter: 2012Q3

REPORT INFORMATION
  Report Type: 
  Country: None (occurrence: None)
  Receive Date: 20120712
  Receipt Date: 20120703
  Transmission Date: 20120928
  Serious: Yes (Disabling)
  Sender: FDA-Public Use
  Company Number: PHHY2012FR057791

PATIENT
  Sex: Female

DRUGS (7)
  1. SINGULAIR [Suspect]
     Indication: ASTHMA
     Dosage: 1 DF, UNK
     Route: 048
     Dates: start: 20091001
  2. XOLAIR [Suspect]
     Indication: ASTHMA
     Dosage: 225 MG, Q2W
     Route: 058
     Dates: start: 20010101
  3. SYMBICORT [Suspect]
     Dosage: 1 DF, BID
     Dates: start: 20010101
  4. SOLU-MEDROL [Suspect]
     Dosage: 250 MG, DAILY
     Dates: start: 20110608, end: 20111001
  5. HYDROCORTISONE [Suspect]
     Dosage: 30 MG, DAILY
     Dates: start: 20111001
  6. CALCIUM \^SANDOZ\^ [Suspect]
     Dosage: 500 MG, BID
     Dates: start: 20100501
  7. VITAMIN D [Suspect]
     Dosage: 1 DF, QMO
     Dates: start: 20101126

REACTIONS (2)
  - TENDONITIS [None]
  - TENDON PAIN [None]
